FAERS Safety Report 13965985 (Version 1)
Quarter: 2017Q3

REPORT INFORMATION
  Report Type: Spontaneous
  Country: IR (occurrence: IR)
  Receive Date: 20170913
  Receipt Date: 20170913
  Transmission Date: 20171128
  Serious: Yes (Other)
  Sender: FDA-Public Use
  Company Number: IR-PFIZER INC-3057429

PATIENT
  Age: 52 Year
  Sex: Male

DRUGS (5)
  1. BEVACIZUMAB. [Concomitant]
     Active Substance: BEVACIZUMAB
     Indication: PRODUCT USED FOR UNKNOWN INDICATION
     Dosage: 7.5 MG/KG, EVERY 3 WEEKS FOR NEARLY 8 MONTHS
     Route: 042
  2. OXALIPLATIN. [Suspect]
     Active Substance: OXALIPLATIN
     Indication: CHEMOTHERAPY
     Dosage: 130 MG, TO 3 CYCLES, FREQ: 2 DAY; INTERVAL: 1
     Route: 042
  3. XELODA [Suspect]
     Active Substance: CAPECITABINE
     Dosage: 1000 MG/M,EVERY 3 WEEKS FOR NEARLY 8 MONTHS, FREQ: 2 DAY; INTERVAL: 1
     Route: 048
  4. IRINOTECAN HCL [Suspect]
     Active Substance: IRINOTECAN HYDROCHLORIDE
     Indication: PRODUCT USED FOR UNKNOWN INDICATION
     Dosage: UNK
  5. XELODA [Suspect]
     Active Substance: CAPECITABINE
     Indication: PRODUCT USED FOR UNKNOWN INDICATION
     Dosage: 1000 MG, TO 3 CYCLES, FREQ: 2 DAY; INTERVAL:1

REACTIONS (1)
  - Chronic myeloid leukaemia [Recovering/Resolving]
